FAERS Safety Report 8342233-8 (Version None)
Quarter: 2012Q2

REPORT INFORMATION
  Report Type: 
  Country: None (occurrence: None)
  Receive Date: 20120507
  Receipt Date: 20120426
  Transmission Date: 20120825
  Serious: Yes (Other)
  Sender: FDA-Public Use
  Company Number: US-AMGEN-USASP2012025135

PATIENT
  Age: 75 Year
  Sex: Male

DRUGS (1)
  1. ENBREL [Suspect]
     Indication: RHEUMATOID ARTHRITIS
     Dosage: 50 MG, QWK
     Dates: start: 20120412, end: 20120419

REACTIONS (10)
  - WHEEZING [None]
  - COUGH [None]
  - INJECTION SITE REACTION [None]
  - DYSPNOEA [None]
  - FATIGUE [None]
  - INJECTION SITE SWELLING [None]
  - INJECTION SITE ERYTHEMA [None]
  - RASH ERYTHEMATOUS [None]
  - INJECTION SITE HAEMATOMA [None]
  - INJECTION SITE RASH [None]
